FAERS Safety Report 6166113-1 (Version None)
Quarter: 2009Q2

REPORT INFORMATION
  Report Type: 
  Country: None (occurrence: None)
  Receive Date: 20090422
  Receipt Date: 20090422
  Transmission Date: 20091009
  Serious: No
  Sender: FDA-Public Use
  Company Number: None

PATIENT
  Age: 81 Year

DRUGS (2)
  1. MIDAZOLAM HCL [Suspect]
     Dates: start: 20081111, end: 20081111
  2. FENTANYL CITRATE [Suspect]
     Dosage: 1; 1 TOTAL
     Dates: start: 20081111, end: 20081111

REACTIONS (2)
  - HYPOTENSION [None]
  - UNRESPONSIVE TO STIMULI [None]
